FAERS Safety Report 4551180-9 (Version None)
Quarter: 2005Q1

REPORT INFORMATION
  Report Type: 
  Country: None (occurrence: None)
  Receive Date: 20050110
  Receipt Date: 20041210
  Transmission Date: 20050727
  Serious: Yes (Other)
  Sender: FDA-Public Use
  Company Number: 2004-12-0483

PATIENT
  Age: 16 Year
  Sex: Female

DRUGS (3)
  1. CORICIDIN [Suspect]
     Indication: INTENTIONAL MISUSE
     Dosage: 8-10 TABS ORAL
     Route: 048
  2. DRAMAMINE [Concomitant]
  3. ALCOHOL [Concomitant]

REACTIONS (5)
  - HALLUCINATION [None]
  - HEADACHE [None]
  - HYPERHIDROSIS [None]
  - INTENTIONAL MISUSE [None]
  - STOMACH DISCOMFORT [None]
